FAERS Safety Report 5908128-1 (Version None)
Quarter: 2008Q4

REPORT INFORMATION
  Report Type: 
  Country: None (occurrence: None)
  Receive Date: 20081003
  Receipt Date: 20080922
  Transmission Date: 20090506
  Serious: Yes (Other)
  Sender: FDA-Public Use
  Company Number: TR-PFIZER INC-2008081206

PATIENT
  Age: 14 Year
  Sex: Female

DRUGS (4)
  1. DOXORUBICIN HCL [Suspect]
  2. PREDNISONE [Suspect]
  3. CYCLOPHOSPHAMIDE [Suspect]
  4. ONCOVIN [Suspect]

REACTIONS (1)
  - REVERSIBLE POSTERIOR LEUKOENCEPHALOPATHY SYNDROME [None]
